FAERS Safety Report 5775157-0 (Version None)
Quarter: 2008Q2

REPORT INFORMATION
  Report Type: 
  Country: None (occurrence: None)
  Receive Date: 20080617
  Receipt Date: 20080616
  Transmission Date: 20081010
  Serious: Yes (Hospitalization)
  Sender: FDA-Public Use
  Company Number: AU-BRISTOL-MYERS SQUIBB COMPANY-14228878

PATIENT
  Age: 85 Year
  Sex: Male

DRUGS (4)
  1. AVAPRO [Suspect]
     Dosage: INTERRUPTED ON 07-MAR-2006 1 DOSAGE FORM = 150/12.5
     Route: 048
  2. WARFARIN SODIUM [Interacting]
     Dosage: INTERRUPTED ON 07-MAR-2006.
     Route: 048
  3. DIGOXIN [Interacting]
     Dosage: INTERRUPTED ON 07-MAR-2006.
     Route: 048
  4. NOROXIN [Interacting]
     Dosage: INTERRUPTED ON 07-MAR-2006.
     Route: 048

REACTIONS (8)
  - ATRIAL FIBRILLATION [None]
  - BRADYCARDIA [None]
  - DRUG INTERACTION [None]
  - EPISTAXIS [None]
  - HYPONATRAEMIA [None]
  - INTERNATIONAL NORMALISED RATIO INCREASED [None]
  - JAUNDICE [None]
  - LIVER FUNCTION TEST ABNORMAL [None]
